FAERS Safety Report 9358767 (Version 1)
Quarter: 2013Q2

REPORT INFORMATION
  Report Type: Report from Study
  Country: DE (occurrence: DE)
  Receive Date: 20130620
  Receipt Date: 20130620
  Transmission Date: 20140414
  Serious: Yes (Other)
  Sender: FDA-Public Use
  Company Number: PHHY2010DE093788

PATIENT
  Sex: Female
  Weight: 55 kg

DRUGS (3)
  1. EXJADE [Suspect]
     Indication: PYRUVATE KINASE DEFICIENCY ANAEMIA
     Dosage: 500 MG, BID
     Route: 048
     Dates: start: 20091115
  2. EXJADE [Suspect]
     Dosage: 500 MG, BID
     Route: 048
  3. EXJADE [Suspect]
     Dosage: 500 MG, UNK
     Route: 048
     Dates: start: 20110211

REACTIONS (5)
  - Haemolysis [Unknown]
  - Infection [Unknown]
  - Haemoglobin decreased [Unknown]
  - Blood creatinine increased [Recovered/Resolved]
  - Diarrhoea [Unknown]
